FAERS Safety Report 25290259 (Version 2)
Quarter: 2025Q3

REPORT INFORMATION
  Report Type: Spontaneous
  Country: US (occurrence: US)
  Receive Date: 20250510
  Receipt Date: 20250925
  Transmission Date: 20251021
  Serious: Yes (Hospitalization, Other)
  Sender: SANOFI AVENTIS
  Company Number: US-SA-2025SA133581

PATIENT
  Age: 45 Year
  Sex: Female

DRUGS (2)
  1. DUPIXENT [Suspect]
     Active Substance: DUPILUMAB
     Indication: Eosinophilic oesophagitis
     Dosage: 300 MG, QW
     Route: 058
     Dates: start: 202410
  2. WARFARIN [Concomitant]
     Active Substance: WARFARIN

REACTIONS (15)
  - Cardiac myxoma [Unknown]
  - Cardiac ventricular thrombosis [Unknown]
  - Dysphagia [Unknown]
  - Dyspnoea exertional [Recovering/Resolving]
  - Condition aggravated [Recovering/Resolving]
  - Mitral valve replacement [Unknown]
  - Dilatation atrial [Unknown]
  - Atrial septal defect [Unknown]
  - Asthma [Unknown]
  - Blood pressure increased [Unknown]
  - Eosinophilic oesophagitis [Unknown]
  - Rebound effect [Unknown]
  - Dysphagia [Unknown]
  - Product dose omission in error [Unknown]
  - Atrial appendage closure [Unknown]

NARRATIVE: CASE EVENT DATE: 20241218
